FAERS Safety Report 20100648 (Version 1)
Quarter: 2021Q4

REPORT INFORMATION
  Report Type: Spontaneous
  Country: CN (occurrence: CN)
  Receive Date: 20211123
  Receipt Date: 20211123
  Transmission Date: 20220303
  Serious: Yes (Other)
  Sender: FDA-Public Use
  Company Number: CN-009507513-2111CHN006918

PATIENT
  Age: 52 Year
  Sex: Male
  Weight: 66 kg

DRUGS (6)
  1. KEYTRUDA [Suspect]
     Active Substance: PEMBROLIZUMAB
     Indication: Nasopharyngeal cancer
     Dosage: 200 MG, ONCE
     Route: 041
     Dates: start: 20211019, end: 20211019
  2. GEMZAR [Suspect]
     Active Substance: GEMCITABINE HYDROCHLORIDE
     Indication: Nasopharyngeal cancer
     Dosage: 1800 MILLIGRAM, QW
     Route: 041
     Dates: start: 20211014, end: 20211021
  3. CISPLATIN [Suspect]
     Active Substance: CISPLATIN
     Indication: Nasopharyngeal cancer
     Dosage: 50 MG, QD
     Route: 041
     Dates: start: 20211014, end: 20211016
  4. SODIUM CHLORIDE [Concomitant]
     Active Substance: SODIUM CHLORIDE
     Dosage: 100 MILLILITER, QW
     Route: 041
     Dates: start: 20211014, end: 20211021
  5. SODIUM CHLORIDE [Concomitant]
     Active Substance: SODIUM CHLORIDE
     Dosage: 250 MILLILITER, QD
     Route: 041
     Dates: start: 20211014, end: 20211016
  6. SODIUM CHLORIDE [Concomitant]
     Active Substance: SODIUM CHLORIDE
     Dosage: 100 MILLILITER, QD
     Route: 041
     Dates: start: 20211019, end: 20211019

REACTIONS (3)
  - White blood cell count decreased [Recovering/Resolving]
  - Neutrophil count decreased [Recovering/Resolving]
  - Product use issue [Unknown]

NARRATIVE: CASE EVENT DATE: 20211019
